FAERS Safety Report 23555356 (Version 1)
Quarter: 2024Q1

REPORT INFORMATION
  Report Type: Spontaneous
  Country: NO (occurrence: NO)
  Receive Date: 20240222
  Receipt Date: 20240222
  Transmission Date: 20240410
  Serious: Yes (Hospitalization, Other)
  Sender: FDA-Public Use
  Company Number: None

PATIENT
  Age: 30 Year
  Sex: Female

DRUGS (3)
  1. MOMETASONE [Suspect]
     Active Substance: MOMETASONE
     Indication: Ear discomfort
     Dosage: 2 DF, QD
     Route: 045
     Dates: start: 202208
  2. QUETIAPINE [Concomitant]
     Active Substance: QUETIAPINE
     Indication: Sleep disorder
     Dosage: 100 MG
     Route: 065
     Dates: start: 2014
  3. QUETIAPINE [Concomitant]
     Active Substance: QUETIAPINE
     Indication: Mood swings

REACTIONS (11)
  - Loss of consciousness [Unknown]
  - Panic attack [Recovered/Resolved with Sequelae]
  - Anxiety [Recovered/Resolved with Sequelae]
  - Insomnia [Recovered/Resolved with Sequelae]
  - Suicidal ideation [Recovering/Resolving]
  - Major depression [Recovered/Resolved with Sequelae]
  - Blood iron decreased [Unknown]
  - Haemoglobin decreased [Unknown]
  - Derealisation [Recovering/Resolving]
  - Dissociation [Recovering/Resolving]
  - Dizziness [Recovering/Resolving]

NARRATIVE: CASE EVENT DATE: 20220801
